FAERS Safety Report 6256191-3 (Version None)
Quarter: 2009Q3

REPORT INFORMATION
  Report Type: 
  Country: None (occurrence: None)
  Receive Date: 20090706
  Receipt Date: 20090626
  Transmission Date: 20100115
  Serious: Yes (Other)
  Sender: FDA-Public Use
  Company Number: PHHY2009BR26127

PATIENT
  Sex: Female

DRUGS (1)
  1. LESCOL [Suspect]
     Indication: BLOOD CHOLESTEROL
     Dosage: 20 MG, UNK

REACTIONS (1)
  - CATARACT OPERATION [None]
